FAERS Safety Report 8986792 (Version 2)
Quarter: 2013Q2

REPORT INFORMATION
  Report Type: Spontaneous
  Country: FR (occurrence: FR)
  Receive Date: 20121226
  Receipt Date: 20130409
  Transmission Date: 20140414
  Serious: Yes (Hospitalization)
  Sender: FDA-Public Use
  Company Number: FR-ROCHE-1173302

PATIENT
  Age: 91 Year
  Sex: Male
  Weight: 68 kg

DRUGS (5)
  1. ROCEPHINE [Suspect]
     Indication: INTERVERTEBRAL DISCITIS
     Route: 042
     Dates: start: 20120924, end: 20121016
  2. ROCEPHINE [Suspect]
     Route: 042
     Dates: start: 20121017, end: 20121128
  3. TAVANIC [Suspect]
     Indication: INTERVERTEBRAL DISCITIS
     Route: 048
     Dates: start: 20121017, end: 20121128
  4. LASILIX [Concomitant]
  5. LOXEN [Concomitant]

REACTIONS (1)
  - Renal failure acute [Recovering/Resolving]
